FAERS Safety Report 9973574 (Version 1)
Quarter: 2014Q1

REPORT INFORMATION
  Report Type: Spontaneous
  Country: JP (occurrence: JP)
  Receive Date: 20140306
  Receipt Date: 20140306
  Transmission Date: 20141002
  Serious: Yes (Other)
  Sender: FDA-Public Use
  Company Number: JP-OTSUKA-JP-2014-11925

PATIENT
  Sex: 0

DRUGS (2)
  1. PLETAAL [Suspect]
     Indication: CAROTID ARTERY STENOSIS
     Dosage: UNK
     Route: 048
  2. ASPIRIN [Concomitant]
     Dosage: UNK
     Route: 065

REACTIONS (7)
  - Cerebrovascular accident [Unknown]
  - Cerebrovascular accident [Unknown]
  - Transient ischaemic attack [Unknown]
  - Bradycardia [Unknown]
  - Rash [Unknown]
  - Hypotension [Unknown]
  - Hypertension [Unknown]
